FAERS Safety Report 25510020 (Version 1)
Quarter: 2025Q3

REPORT INFORMATION
  Report Type: Report from Study
  Country: CO (occurrence: CO)
  Receive Date: 20250703
  Receipt Date: 20250703
  Transmission Date: 20251020
  Serious: Yes (Death, Life-Threatening)
  Sender: BIOCODEX
  Company Number: CO-BIOCODEX2-2025001039

PATIENT
  Age: 5 Year
  Sex: Female

DRUGS (4)
  1. DIACOMIT [Suspect]
     Active Substance: STIRIPENTOL
     Indication: Severe myoclonic epilepsy of infancy
     Dosage: 500MG/8HOURS
     Route: 048
     Dates: start: 20250129
  2. DIACOMIT [Suspect]
     Active Substance: STIRIPENTOL
     Indication: Severe myoclonic epilepsy of infancy
     Dosage: 250MG/24HOURS
     Route: 048
  3. CLOBAZAM [Concomitant]
     Active Substance: CLOBAZAM
     Indication: Severe myoclonic epilepsy of infancy
     Dosage: 10MG/12HOURS
     Route: 065
     Dates: start: 20231101, end: 20250622
  4. VALPROIC ACID [Concomitant]
     Active Substance: VALPROIC ACID
     Indication: Severe myoclonic epilepsy of infancy
     Dosage: 3.5CC/8HOURS
     Route: 065
     Dates: start: 20210801, end: 20250622

REACTIONS (3)
  - Pneumonia [Fatal]
  - Seizure [Recovering/Resolving]
  - Off label use [Unknown]

NARRATIVE: CASE EVENT DATE: 20250617
